FAERS Safety Report 15800701 (Version 2)
Quarter: 2020Q1

REPORT INFORMATION
  Report Type: Spontaneous
  Country: US (occurrence: US)
  Receive Date: 20190109
  Receipt Date: 20200102
  Transmission Date: 20200409
  Serious: Yes (Other)
  Sender: FDA-Public Use
  Company Number: US-TEVA-2018-US-865125

PATIENT
  Age: 35 Year
  Sex: Female
  Weight: 82 kg

DRUGS (1)
  1. NUVIGIL [Suspect]
     Active Substance: ARMODAFINIL
     Indication: NARCOLEPSY
     Dates: start: 2016, end: 201704

REACTIONS (4)
  - Maternal exposure during pregnancy [Unknown]
  - Hyperemesis gravidarum [Recovered/Resolved]
  - Normal newborn [Unknown]
  - Insomnia [Unknown]

NARRATIVE: CASE EVENT DATE: 201704
